FAERS Safety Report 19278163 (Version 1)
Quarter: 2021Q2

REPORT INFORMATION
  Report Type: Spontaneous
  Country: DE (occurrence: DE)
  Receive Date: 20210520
  Receipt Date: 20210520
  Transmission Date: 20210717
  Serious: Yes (Other)
  Sender: FDA-Public Use
  Company Number: DE-ALK-ABELLO A/S-2021AA001775

PATIENT

DRUGS (2)
  1. ITULAZAX [Suspect]
     Active Substance: BETULA PENDULA POLLEN
     Indication: PRODUCT USED FOR UNKNOWN INDICATION
     Dosage: 12 SQ?BET
     Route: 060
     Dates: start: 202005
  2. GRAZAX [Suspect]
     Active Substance: PHLEUM PRATENSE POLLEN
     Indication: PRODUCT USED FOR UNKNOWN INDICATION
     Dosage: 75000 SQ?T
     Route: 060
     Dates: start: 202005

REACTIONS (3)
  - Rheumatoid arthritis [Not Recovered/Not Resolved]
  - Contraindicated product administered [Unknown]
  - Off label use [Unknown]

NARRATIVE: CASE EVENT DATE: 202005
